FAERS Safety Report 12908078 (Version 1)
Quarter: 2016Q4

REPORT INFORMATION
  Report Type: Spontaneous
  Country: US (occurrence: US)
  Receive Date: 20161103
  Receipt Date: 20161103
  Transmission Date: 20170207
  Serious: No
  Sender: FDA-Public Use
  Company Number: US-PERRIGO-16US016642

PATIENT
  Age: 72 Year
  Sex: Female

DRUGS (4)
  1. MESALAZINE [Suspect]
     Active Substance: MESALAMINE
     Dosage: 4 G, QOD
     Route: 054
     Dates: start: 201512, end: 2016
  2. MESALAZINE [Suspect]
     Active Substance: MESALAMINE
     Indication: COLITIS
     Dosage: 4 G, QHS
     Route: 054
     Dates: start: 201512, end: 201512
  3. MESALAZINE [Suspect]
     Active Substance: MESALAMINE
     Dosage: 4 G, ONCE EVERY THREE DAYS
     Route: 054
     Dates: start: 2016
  4. HYDROCHLOROTHIAZIDE. [Concomitant]
     Active Substance: HYDROCHLOROTHIAZIDE
     Indication: FLUID RETENTION
     Dosage: UNK
     Route: 065

REACTIONS (4)
  - Proctalgia [Not Recovered/Not Resolved]
  - Musculoskeletal discomfort [Not Recovered/Not Resolved]
  - Arthralgia [Not Recovered/Not Resolved]
  - Inappropriate schedule of drug administration [Not Recovered/Not Resolved]

NARRATIVE: CASE EVENT DATE: 201512
